FAERS Safety Report 23459657 (Version 1)
Quarter: 2024Q1

REPORT INFORMATION
  Report Type: Spontaneous
  Country: US (occurrence: US)
  Receive Date: 20240131
  Receipt Date: 20240131
  Transmission Date: 20240410
  Serious: Yes (Hospitalization, Other)
  Sender: FDA-Public Use
  Company Number: US-EPICPHARMA-US-2024EPCLIT00211

PATIENT
  Age: 44 Year
  Sex: Male

DRUGS (3)
  1. LIDOCAINE HYDROCHLORIDE [Suspect]
     Active Substance: LIDOCAINE HYDROCHLORIDE
     Indication: Cardiac arrest
  2. EPINEPHRINE [Concomitant]
     Active Substance: EPINEPHRINE
     Indication: Cardiac arrest
  3. MIDAZOLAM [Concomitant]
     Active Substance: MIDAZOLAM
     Indication: Cardiac arrest

REACTIONS (2)
  - Peroneal nerve palsy [Recovering/Resolving]
  - Product use in unapproved indication [Unknown]
